FAERS Safety Report 13398323 (Version 1)
Quarter: 2017Q2

REPORT INFORMATION
  Report Type: Report from Study
  Country: US (occurrence: US)
  Receive Date: 20170403
  Receipt Date: 20170403
  Transmission Date: 20170830
  Serious: Yes (Other)
  Sender: FDA-Public Use
  Company Number: US-TEVA-755642USA

PATIENT
  Age: 30 Week

DRUGS (1)
  1. OCTREOTIDE. [Suspect]
     Active Substance: OCTREOTIDE
     Indication: HYPERINSULINISM
     Dosage: OFF-LABEL TREATMENT
     Route: 042

REACTIONS (2)
  - Off label use [Unknown]
  - Deep vein thrombosis [Unknown]
